FAERS Safety Report 16590283 (Version 2)
Quarter: 2019Q3

REPORT INFORMATION
  Report Type: Spontaneous
  Country: DK (occurrence: DK)
  Receive Date: 20190718
  Receipt Date: 20190821
  Transmission Date: 20191004
  Serious: Yes (Hospitalization)
  Sender: FDA-Public Use
  Company Number: PHHY2019DK163116

PATIENT
  Age: 77 Year
  Sex: Female

DRUGS (3)
  1. CARBOPLATIN. [Concomitant]
     Active Substance: CARBOPLATIN
     Indication: BREAST CANCER
     Dosage: 285 MG, Q3W (60%)
     Route: 042
     Dates: start: 20190618
  2. GEMCITABINE. [Suspect]
     Active Substance: GEMCITABINE
     Dosage: 1485 MG, Q3W (60%)
     Route: 042
     Dates: start: 20190625
  3. GEMCITABINE. [Suspect]
     Active Substance: GEMCITABINE
     Indication: BREAST CANCER
     Dosage: 1485 MG, (DAY ONE AND DAY 8 EVERY 3 WEEKS) (75%)
     Route: 042
     Dates: start: 20190618

REACTIONS (4)
  - Sepsis [Recovered/Resolved]
  - Pancytopenia [Recovered/Resolved]
  - Discomfort [Recovered/Resolved]
  - Dizziness [Recovered/Resolved]

NARRATIVE: CASE EVENT DATE: 20190701
